FAERS Safety Report 9103202 (Version 1)
Quarter: 2013Q1

REPORT INFORMATION
  Report Type: Spontaneous
  Country: KR (occurrence: KR)
  Receive Date: 20130219
  Receipt Date: 20130219
  Transmission Date: 20140127
  Serious: Yes (Other)
  Sender: FDA-Public Use
  Company Number: KR-SANOFI-AVENTIS-2013SA013939

PATIENT
  Age: 52 Year
  Sex: Male

DRUGS (7)
  1. CLOPIDOGREL BISULFATE [Suspect]
     Indication: ANTIPLATELET THERAPY
     Route: 065
  2. ASPIRIN [Suspect]
     Indication: ANTIPLATELET THERAPY
     Route: 065
  3. MIDAZOLAM [Concomitant]
     Indication: INDUCTION OF ANAESTHESIA
  4. OXYGEN [Concomitant]
  5. PROPOFOL [Concomitant]
     Indication: INDUCTION OF ANAESTHESIA
     Dosage: DOSE:4 MICROGRAM(S)/MILLILITRE
  6. REMIFENTANIL [Concomitant]
     Indication: INDUCTION OF ANAESTHESIA
     Dosage: 3 NG/ML
  7. SEVOFLURANE [Concomitant]
     Indication: INDUCTION OF ANAESTHESIA
     Dosage: 0.5-1.0 MAC

REACTIONS (3)
  - Dyspnoea [Recovered/Resolved]
  - Cyanosis [Recovered/Resolved]
  - Fear of death [Recovered/Resolved]
